FAERS Safety Report 20443054 (Version 2)
Quarter: 2023Q4

REPORT INFORMATION
  Report Type: Report from Study
  Country: IL (occurrence: None)
  Receive Date: 20220208
  Receipt Date: 20231108
  Transmission Date: 20240110
  Serious: Yes (Disabling)
  Sender: FDA-Public Use
  Company Number: IL-ROCHE-2468886

PATIENT
  Age: 79 Year
  Sex: Male
  Weight: 78 kg

DRUGS (12)
  1. FARICIMAB [Suspect]
     Active Substance: FARICIMAB
     Indication: Neovascular age-related macular degeneration
     Dosage: DATE OF MOST RECENT DOSE OF MASKED STUDY DRUG PRIOR TO AE ONSET - 10/OCT/2019 AT 13:00
     Route: 050
     Dates: start: 20191010
  2. GLUCOMINE [METFORMIN HYDROCHLORIDE] [Concomitant]
     Indication: Type 2 diabetes mellitus
     Route: 048
     Dates: start: 2001
  3. GLIPIZIDE [Concomitant]
     Active Substance: GLIPIZIDE
     Indication: Type 2 diabetes mellitus
     Route: 048
     Dates: start: 2001
  4. OMEPRAZOLE [Concomitant]
     Active Substance: OMEPRAZOLE
     Route: 048
  5. NOCTURNO [Concomitant]
     Indication: Insomnia
     Route: 048
  6. SIMVAXON [Concomitant]
     Indication: Hypercholesterolaemia
     Route: 048
     Dates: start: 2004
  7. PFIZER-BIONTECH COVID-19 VACCINE [Concomitant]
     Active Substance: TOZINAMERAN
     Indication: COVID-19 immunisation
     Dosage: FIRST DOSE
     Route: 030
     Dates: start: 20210105, end: 20210105
  8. PFIZER-BIONTECH COVID-19 VACCINE [Concomitant]
     Active Substance: TOZINAMERAN
     Dosage: SECOND DOSE
     Route: 030
     Dates: start: 20210126, end: 20210126
  9. METAMIZOLE [Concomitant]
     Active Substance: METAMIZOLE
     Dosage: INDICATION : FRACTURE OF RIGHT METACARPAL 5TH FINGER
     Route: 048
     Dates: start: 20211028, end: 20211104
  10. ACETAMINOPHEN [Concomitant]
     Active Substance: ACETAMINOPHEN
     Route: 048
     Dates: start: 20211028, end: 20211104
  11. IMOVAX [Concomitant]
     Active Substance: RABIES VACCINE\RABIES VIRUS STRAIN PM-1503-3M ANTIGEN (PROPIOLACTONE INACTIVATED)
     Indication: Periorbital haematoma
     Route: 030
     Dates: start: 20211029, end: 20211029
  12. CHLORPHENIRAMINE MALEATE [Concomitant]
     Active Substance: CHLORPHENIRAMINE MALEATE
     Indication: Dermatitis allergic
     Route: 048
     Dates: start: 20200915, end: 20200915

REACTIONS (1)
  - Retinal pigment epithelial tear [Not Recovered/Not Resolved]

NARRATIVE: CASE EVENT DATE: 20191105
